FAERS Safety Report 21311037 (Version 1)
Quarter: 2022Q3

REPORT INFORMATION
  Report Type: Spontaneous
  Country: US (occurrence: None)
  Receive Date: 20220909
  Receipt Date: 20220909
  Transmission Date: 20221026
  Serious: No
  Sender: FDA-Public Use
  Company Number: US-ARIS GLOBAL-202112-2376

PATIENT
  Age: 58 Year
  Sex: Female

DRUGS (5)
  1. OXERVATE [Suspect]
     Active Substance: CENEGERMIN-BKBJ
     Indication: Hypoaesthesia eye
     Route: 047
     Dates: start: 20211206
  2. LOTEMAX [Concomitant]
     Active Substance: LOTEPREDNOL ETABONATE
  3. VITAMIN C [Concomitant]
     Active Substance: ASCORBIC ACID
  4. DOXYCYCLINE HYCLATE [Concomitant]
     Active Substance: DOXYCYCLINE HYCLATE
  5. SYNTHROID [Concomitant]
     Active Substance: LEVOTHYROXINE SODIUM

REACTIONS (5)
  - Eye irritation [Unknown]
  - Ocular discomfort [Unknown]
  - Eye pain [Unknown]
  - Sinus congestion [Unknown]
  - Sinusitis [Unknown]

NARRATIVE: CASE EVENT DATE: 20211201
